FAERS Safety Report 10170630 (Version 2)
Quarter: 2016Q2

REPORT INFORMATION
  Report Type: Report from Study
  Country: US (occurrence: US)
  Receive Date: 20140514
  Receipt Date: 20160610
  Transmission Date: 20160815
  Serious: Yes (Other)
  Sender: FDA-Public Use
  Company Number: US-ROCHE-1399026

PATIENT
  Age: 11 Year
  Sex: Male
  Weight: 32.7 kg

DRUGS (6)
  1. CONCERTA [Concomitant]
     Active Substance: METHYLPHENIDATE HYDROCHLORIDE
     Route: 048
  2. NUTROPIN AQ [Suspect]
     Active Substance: SOMATROPIN
     Dosage: DOSE: 0.24 MG/KG/WEEK
     Route: 058
  3. NUTROPIN AQ [Suspect]
     Active Substance: SOMATROPIN
     Dosage: DOSE: 0.3MG/KG/WEEK
     Route: 058
     Dates: start: 20110608
  4. NUTROPIN AQ [Suspect]
     Active Substance: SOMATROPIN
     Route: 058
  5. NUTROPIN AQ [Suspect]
     Active Substance: SOMATROPIN
     Indication: GROWTH RETARDATION
     Route: 058
  6. IBUPROFEN. [Concomitant]
     Active Substance: IBUPROFEN
     Route: 048

REACTIONS (9)
  - Gynaecomastia [Unknown]
  - Growth retardation [Unknown]
  - Lymphadenopathy [Unknown]
  - Allergic sinusitis [Unknown]
  - Headache [Recovering/Resolving]
  - Skin odour abnormal [Unknown]
  - Insulin-like growth factor increased [Unknown]
  - Exostosis [Unknown]
  - Headache [Unknown]

NARRATIVE: CASE EVENT DATE: 20111207
